FAERS Safety Report 4485342-6 (Version None)
Quarter: 2004Q4

REPORT INFORMATION
  Report Type: 
  Country: None (occurrence: None)
  Receive Date: 20041025
  Receipt Date: 20041025
  Transmission Date: 20050328
  Serious: Yes (Life-Threatening, Hospitalization)
  Sender: FDA-Public Use
  Company Number: None

PATIENT
  Age: 73 Year
  Sex: Female

DRUGS (1)
  1. ETANERCEPT   25 MG KIT   WYETH-AYERST LABORATORIES [Suspect]
     Indication: RHEUMATOID ARTHRITIS
     Dosage: 25 MG   TWICE WEEKLY   SUBCUTANEOUS
     Route: 058
     Dates: start: 20040503, end: 20040816

REACTIONS (5)
  - HYPOAESTHESIA [None]
  - NEUROLOGICAL SYMPTOM [None]
  - PAIN IN EXTREMITY [None]
  - PERIPHERAL ISCHAEMIA [None]
  - THROMBOSIS [None]
